FAERS Safety Report 5241127-4 (Version None)
Quarter: 2007Q1

REPORT INFORMATION
  Report Type: 
  Country: None (occurrence: None)
  Receive Date: 20070214
  Receipt Date: 20070214
  Transmission Date: 20070707
  Serious: Yes (Hospitalization)
  Sender: FDA-Public Use
  Company Number: None

PATIENT
  Age: 9 Year
  Sex: Male
  Weight: 38.5557 kg

DRUGS (1)
  1. ELIDEL [Suspect]
     Indication: ECZEMA
     Dosage: LIGHT APPLICATION ONE TIME ONLY USED ONCE TOP
     Route: 061
     Dates: start: 20061230, end: 20061230

REACTIONS (9)
  - APPLICATION SITE PAIN [None]
  - APPLICATION SITE REACTION [None]
  - INFECTION [None]
  - MUSCULOSKELETAL STIFFNESS [None]
  - RASH PUSTULAR [None]
  - SCREAMING [None]
  - SKIN DISCOLOURATION [None]
  - SKIN NODULE [None]
  - URTICARIA [None]
